FAERS Safety Report 18351233 (Version 3)
Quarter: 2020Q4

REPORT INFORMATION
  Report Type: Report from Study
  Country: None (occurrence: US)
  Receive Date: 20201007
  Receipt Date: 20201210
  Transmission Date: 20210114
  Serious: Yes (Hospitalization, Other)
  Sender: FDA-Public Use
  Company Number: US-ABBVIE-20K-163-3504716-00

PATIENT
  Age: 16 Year
  Sex: Male
  Weight: 118.04 kg

DRUGS (5)
  1. HUMIRA [Suspect]
     Active Substance: ADALIMUMAB
     Indication: CROHN^S DISEASE
     Dosage: DAY ONE
     Route: 058
     Dates: start: 20200728, end: 20200728
  2. HUMIRA [Suspect]
     Active Substance: ADALIMUMAB
     Indication: CROHN^S DISEASE
     Route: 058
     Dates: start: 20200827, end: 202009
  3. HUMIRA [Suspect]
     Active Substance: ADALIMUMAB
     Route: 058
     Dates: start: 20201008
  4. HUMIRA [Suspect]
     Active Substance: ADALIMUMAB
     Route: 058
     Dates: start: 20200924, end: 20200924
  5. HUMIRA [Suspect]
     Active Substance: ADALIMUMAB
     Dosage: DAY 15
     Route: 058
     Dates: start: 20200813, end: 20200813

REACTIONS (18)
  - Abdominal pain upper [Not Recovered/Not Resolved]
  - Weight decreased [Unknown]
  - Stoma creation [Unknown]
  - Depressed mood [Not Recovered/Not Resolved]
  - Product use issue [Unknown]
  - Pyrexia [Recovering/Resolving]
  - Intestinal resection [Unknown]
  - Decreased appetite [Recovering/Resolving]
  - Fear [Not Recovered/Not Resolved]
  - Haematochezia [Unknown]
  - Loss of personal independence in daily activities [Recovering/Resolving]
  - Hyperhidrosis [Unknown]
  - Abdominal pain [Recovering/Resolving]
  - Asthenia [Unknown]
  - Malaise [Recovering/Resolving]
  - Post procedural diarrhoea [Unknown]
  - Insomnia [Not Recovered/Not Resolved]
  - Diarrhoea [Not Recovered/Not Resolved]

NARRATIVE: CASE EVENT DATE: 2020
